FAERS Safety Report 5596855-8 (Version None)
Quarter: 2008Q1

REPORT INFORMATION
  Report Type: 
  Country: None (occurrence: None)
  Receive Date: 20080119
  Receipt Date: 20080110
  Transmission Date: 20080703
  Serious: Yes (Hospitalization)
  Sender: FDA-Public Use
  Company Number: AU-PFIZER INC-2008003738

PATIENT
  Sex: Male
  Weight: 79 kg

DRUGS (10)
  1. MARAVIROC [Suspect]
     Indication: HIV INFECTION
     Route: 048
  2. PLAVIX [Concomitant]
     Route: 048
     Dates: start: 20070701, end: 20080103
  3. PRAVACHOL [Concomitant]
     Route: 048
  4. DIAZEPAM [Concomitant]
     Route: 048
  5. PREDNISONE [Concomitant]
     Route: 048
  6. ASPIRIN [Concomitant]
     Route: 048
     Dates: start: 20070801, end: 20080103
  7. NEXIUM [Concomitant]
     Route: 048
  8. ENDONE [Concomitant]
     Route: 048
  9. ABACAVIR/LAMIVUDINE [Concomitant]
     Route: 048
  10. LOPERAMIDE HCL [Concomitant]
     Route: 048

REACTIONS (2)
  - PEPTIC ULCER [None]
  - PLEURAL EFFUSION [None]
